FAERS Safety Report 7968894-0 (Version None)
Quarter: 2011Q4

REPORT INFORMATION
  Report Type: 
  Country: None (occurrence: None)
  Receive Date: 20111208
  Receipt Date: 20111124
  Transmission Date: 20120403
  Serious: Yes (Other)
  Sender: FDA-Public Use
  Company Number: 1000023101

PATIENT
  Age: 33 Year
  Sex: Female

DRUGS (3)
  1. PROMETHAZINE HYDROCHLORIDE [Suspect]
     Indication: SLEEP DISORDER
     Dosage: (12.5 MG, ONCE), ORAL, 1 WEEK BEFORE EVENT
     Route: 048
  2. ESCITALOPRAM OXALATE [Suspect]
     Indication: DEPRESSION
     Dosage: 10 MG (10 MG, 1 IN 1 D), ORAL
     Route: 048
  3. CITALOPRAM HYDROBROMIDE [Suspect]
     Indication: DEPRESSION
     Dosage: 20 MG (20 MG, 1 IN 1 D), ORAL
     Route: 048

REACTIONS (1)
  - INTRAOCULAR PRESSURE INCREASED [None]
